FAERS Safety Report 5122410-X (Version None)
Quarter: 2006Q4

REPORT INFORMATION
  Report Type: 
  Country: None (occurrence: None)
  Receive Date: 20061004
  Receipt Date: 20060922
  Transmission Date: 20070319
  Serious: Yes (Hospitalization)
  Sender: FDA-Public Use
  Company Number: 228571

PATIENT
  Age: 43 Year
  Sex: Female
  Weight: 83 kg

DRUGS (5)
  1. RAPTIVA [Suspect]
     Indication: PSORIASIS
     Dosage: 85 MG, 1/WEEK, SUBCUTANEOUS
     Route: 058
     Dates: start: 20060630, end: 20060804
  2. PROCRIT [Concomitant]
  3. MEFOXIN [Concomitant]
  4. FLAGYL [Concomitant]
  5. ACYCLOVIR [Concomitant]

REACTIONS (19)
  - ALANINE AMINOTRANSFERASE INCREASED [None]
  - ANAEMIA [None]
  - ASPARTATE AMINOTRANSFERASE INCREASED [None]
  - BLOOD ALKALINE PHOSPHATASE INCREASED [None]
  - CHEST PAIN [None]
  - CLOSTRIDIAL INFECTION [None]
  - CULTURE STOOL POSITIVE [None]
  - DIARRHOEA [None]
  - ENTEROCOCCAL INFECTION [None]
  - EPSTEIN-BARR VIRUS TEST POSITIVE [None]
  - HEPATOSPLENOMEGALY [None]
  - HERPES SIMPLEX [None]
  - HOT FLUSH [None]
  - HYPERHIDROSIS [None]
  - PLATELET COUNT DECREASED [None]
  - PROTHROMBIN TIME PROLONGED [None]
  - PSEUDOMONAS INFECTION [None]
  - PYREXIA [None]
  - WHITE BLOOD CELL COUNT INCREASED [None]
